FAERS Safety Report 9631969 (Version 5)
Quarter: 2014Q3

REPORT INFORMATION
  Report Type: Spontaneous
  Country: US (occurrence: US)
  Receive Date: 20131018
  Receipt Date: 20140909
  Transmission Date: 20150326
  Serious: Yes (Hospitalization)
  Sender: FDA-Public Use
  Company Number: US-BAYER-2013-124866

PATIENT
  Age: 35 Year
  Sex: Female
  Weight: 63.49 kg

DRUGS (2)
  1. MIRENA [Suspect]
     Active Substance: LEVONORGESTREL
     Indication: MENORRHAGIA
     Dosage: UNK
  2. MIRENA [Suspect]
     Active Substance: LEVONORGESTREL
     Indication: CONTRACEPTION
     Dosage: 20 MCG/24HR, CONT
     Route: 015
     Dates: start: 20100115, end: 20111021

REACTIONS (8)
  - Emotional distress [None]
  - Injury [None]
  - Device issue [None]
  - Menorrhagia [None]
  - Pancreatic injury [None]
  - Abdominal pain [None]
  - Device dislocation [None]
  - Uterine perforation [None]

NARRATIVE: CASE EVENT DATE: 201010
